FAERS Safety Report 4379937-8 (Version None)
Quarter: 2004Q2

REPORT INFORMATION
  Report Type: 
  Country: None (occurrence: None)
  Receive Date: 20040614
  Receipt Date: 20040601
  Transmission Date: 20050107
  Serious: Yes (Hospitalization)
  Sender: FDA-Public Use
  Company Number: 04P-167-0262669-00

PATIENT
  Age: 55 Year
  Sex: Female
  Weight: 89 kg

DRUGS (15)
  1. HUMIRA 40 MG/ 0.8 ML PRE-FILLED SYRINGE (HUMIRA) (ADALIMUMAB) [Suspect]
     Indication: RHEUMATOID ARTHRITIS
     Dosage: 40 MG, 1 IN 2 WK, SUBCUTANEOUS
     Route: 058
     Dates: start: 20031113
  2. METRONIDAZOLE [Concomitant]
  3. AMITRIPTYLINE HCL [Concomitant]
  4. LOSARTAN POTASSIUM [Concomitant]
  5. FOLIC ACID [Concomitant]
  6. FERROUS SULFATE TAB [Concomitant]
  7. TRAMADOL HCL [Concomitant]
  8. MELOXICAM [Concomitant]
  9. ALENDRONATE SODIUM [Concomitant]
  10. LEFLUNOMIDE [Concomitant]
  11. CARVEDILOL [Concomitant]
  12. CALCIUM CARBONATE [Concomitant]
  13. PREDNISOLONE [Concomitant]
  14. ACETAMINOPHEN [Concomitant]
  15. METHOTREXATE [Concomitant]

REACTIONS (1)
  - NERVE COMPRESSION [None]
